FAERS Safety Report 6516711-8 (Version None)
Quarter: 2009Q4

REPORT INFORMATION
  Report Type: 
  Country: None (occurrence: None)
  Receive Date: 20091223
  Receipt Date: 20090828
  Transmission Date: 20100525
  Serious: No
  Sender: FDA-Public Use
  Company Number: A0775339A

PATIENT
  Sex: Female

DRUGS (4)
  1. RYTHMOL [Suspect]
     Indication: SUPRAVENTRICULAR TACHYCARDIA
     Dosage: 225MG VARIABLE DOSE
     Route: 048
     Dates: start: 19980101
  2. LEVOTHROID [Suspect]
  3. COZAAR [Concomitant]
  4. CLONIDINE [Concomitant]

REACTIONS (6)
  - DIARRHOEA [None]
  - DRUG INTERACTION [None]
  - PALPITATIONS [None]
  - PRODUCT QUALITY ISSUE [None]
  - THYROXINE FREE INCREASED [None]
  - TRI-IODOTHYRONINE INCREASED [None]
